FAERS Safety Report 14950916 (Version 2)
Quarter: 2019Q1

REPORT INFORMATION
  Report Type: Spontaneous
  Country: FR (occurrence: FR)
  Receive Date: 20180530
  Receipt Date: 20190108
  Transmission Date: 20190417
  Serious: Yes (Other)
  Sender: FDA-Public Use
  Company Number: FR-MERCK KGAA-2048656

PATIENT
  Age: 66 Year
  Sex: Female

DRUGS (1)
  1. EUTHYROX [Suspect]
     Active Substance: LEVOTHYROXINE SODIUM
     Indication: THYROID DISORDER
     Dates: start: 201704

REACTIONS (21)
  - Joint ankylosis [None]
  - Irritability [None]
  - Fatigue [None]
  - Premature ageing [None]
  - Blood urea increased [None]
  - Pain [None]
  - Aggression [None]
  - Blood thyroid stimulating hormone increased [Recovered/Resolved]
  - Blood triglycerides increased [None]
  - Myalgia [None]
  - Amnesia [None]
  - Alopecia [None]
  - Chronic kidney disease [None]
  - Blood creatinine increased [None]
  - Depression [None]
  - Affect lability [None]
  - Muscle spasms [None]
  - Insomnia [None]
  - Gait disturbance [None]
  - Disturbance in attention [None]
  - Mood swings [None]

NARRATIVE: CASE EVENT DATE: 201706
